FAERS Safety Report 16084040 (Version 3)
Quarter: 2019Q2

REPORT INFORMATION
  Report Type: Spontaneous
  Country: US (occurrence: US)
  Receive Date: 20190318
  Receipt Date: 20190604
  Transmission Date: 20190711
  Serious: No
  Sender: FDA-Public Use
  Company Number: US-PFIZER INC-2019110120

PATIENT
  Sex: Female

DRUGS (1)
  1. FLECTOR [Suspect]
     Active Substance: DICLOFENAC EPOLAMINE
     Indication: MYALGIA
     Dosage: UNK, 2X/DAY
     Route: 061
     Dates: start: 201901

REACTIONS (3)
  - Blister [Unknown]
  - Drug interaction [Unknown]
  - Skin discolouration [Unknown]
